FAERS Safety Report 6750260-7 (Version None)
Quarter: 2010Q2

REPORT INFORMATION
  Report Type: 
  Country: None (occurrence: None)
  Receive Date: 20100601
  Receipt Date: 20100522
  Transmission Date: 20101027
  Serious: Yes (Other)
  Sender: FDA-Public Use
  Company Number: CN-PFIZER INC-2010065747

PATIENT
  Age: 24 Year
  Sex: Female

DRUGS (1)
  1. ZITHROMAX [Suspect]
     Indication: URINARY TRACT INFECTION
     Dosage: 250 MG, 1X/DAY
     Route: 048
     Dates: start: 20090901, end: 20090906

REACTIONS (1)
  - ABORTION [None]
